FAERS Safety Report 9595997 (Version 1)
Quarter: 2013Q4

REPORT INFORMATION
  Report Type: Report from Study
  Country: CA (occurrence: CA)
  Receive Date: 20131004
  Receipt Date: 20131004
  Transmission Date: 20140711
  Serious: Yes (Other)
  Sender: FDA-Public Use
  Company Number: CA-JNJFOC-20130917437

PATIENT
  Age: 50 Year
  Sex: Male
  Weight: 73 kg

DRUGS (5)
  1. REMICADE [Suspect]
     Indication: COLITIS ULCERATIVE
     Route: 042
     Dates: start: 20090821
  2. TYLENOL [Concomitant]
     Route: 065
  3. BENADRYL [Concomitant]
     Route: 042
  4. SOLU-CORTEF [Concomitant]
     Route: 042
  5. SOLU MEDROL [Concomitant]
     Route: 065

REACTIONS (1)
  - Genital herpes [Unknown]
